FAERS Safety Report 6177027-5 (Version None)
Quarter: 2009Q2

REPORT INFORMATION
  Report Type: 
  Country: None (occurrence: None)
  Receive Date: 20090501
  Receipt Date: 20090417
  Transmission Date: 20091009
  Serious: Yes (Hospitalization)
  Sender: FDA-Public Use
  Company Number: DE-ROCHE-628902

PATIENT
  Sex: Male

DRUGS (8)
  1. VESANOID [Suspect]
     Indication: ACUTE MYELOID LEUKAEMIA
     Dosage: 4500MG IN TOTAL INDUCTION PHASE
     Route: 065
     Dates: start: 20060630, end: 20060818
  2. VESANOID [Suspect]
     Dosage: TOTAL DOSAGE OF 810 MG CONSOLIDATION PHASE
     Route: 065
     Dates: start: 20060828, end: 20060905
  3. VESANOID [Suspect]
     Dosage: 10  CYCLES OF MAINTENANCE THERAPY 7X90MG VESANOID 6300 MG IN TOTAL
     Route: 065
     Dates: start: 20061009, end: 20070722
  4. VESANOID [Suspect]
     Route: 065
     Dates: end: 20070901
  5. CYTARABINE [Concomitant]
  6. DAUNORUBICIN HCL [Concomitant]
  7. MITOXANTRON [Concomitant]
  8. THIOGUANINE [Concomitant]

REACTIONS (6)
  - ADENOCARCINOMA PANCREAS [None]
  - DEPRESSED MOOD [None]
  - LISTLESS [None]
  - NIGHTMARE [None]
  - PANCREATITIS [None]
  - SOCIAL AVOIDANT BEHAVIOUR [None]
